FAERS Safety Report 16921925 (Version 1)
Quarter: 2019Q4

REPORT INFORMATION
  Report Type: Report from Study
  Country: CA (occurrence: CA)
  Receive Date: 20191015
  Receipt Date: 20191015
  Transmission Date: 20200122
  Serious: Yes (Hospitalization)
  Sender: FDA-Public Use
  Company Number: CA-HLSUS-2019-CA-000225

PATIENT
  Age: 70 Year
  Sex: Female

DRUGS (1)
  1. CLOZARIL [Suspect]
     Active Substance: CLOZAPINE
     Route: 048
     Dates: start: 20170501, end: 20190224

REACTIONS (7)
  - Dystonia [Recovering/Resolving]
  - Psychotic disorder [Recovering/Resolving]
  - Parkinson^s disease psychosis [Recovering/Resolving]
  - Orthostatic hypotension [Recovering/Resolving]
  - Therapeutic response shortened [Recovering/Resolving]
  - Myocarditis [Unknown]
  - Therapeutic product effect incomplete [Recovering/Resolving]
